FAERS Safety Report 9278201 (Version 1)
Quarter: 2013Q2

REPORT INFORMATION
  Report Type: Spontaneous
  Country: US (occurrence: US)
  Receive Date: 20130508
  Receipt Date: 20130508
  Transmission Date: 20140414
  Serious: No
  Sender: FDA-Public Use
  Company Number: US-BAYER-2013-054741

PATIENT
  Age: 48 Year
  Sex: Female
  Weight: 77 kg

DRUGS (3)
  1. ALEVE TABLET [Suspect]
     Indication: BACK PAIN
     Dosage: 1 DF, PRN
     Route: 048
     Dates: start: 201303, end: 20130424
  2. HYDROCODONE [Concomitant]
  3. DOSTINEX [Concomitant]

REACTIONS (2)
  - Contusion [Recovered/Resolved]
  - Abdominal pain upper [Not Recovered/Not Resolved]
